FAERS Safety Report 9693950 (Version 1)
Quarter: 2013Q4

REPORT INFORMATION
  Report Type: Spontaneous
  Country: US (occurrence: US)
  Receive Date: 20131118
  Receipt Date: 20131118
  Transmission Date: 20140711
  Serious: Yes (Hospitalization)
  Sender: FDA-Public Use
  Company Number: US-PFIZER INC-2013328652

PATIENT
  Age: 63 Year
  Sex: Female

DRUGS (2)
  1. ENBREL [Suspect]
     Indication: RHEUMATOID ARTHRITIS
     Dosage: 25 MG, 2 TIMES/WK
     Dates: start: 20050520
  2. METHOTREXATE SODIUM [Suspect]
     Indication: RHEUMATOID ARTHRITIS
     Dosage: UNK

REACTIONS (6)
  - Foot deformity [Not Recovered/Not Resolved]
  - Abdominal discomfort [Recovered/Resolved]
  - Musculoskeletal pain [Recovered/Resolved]
  - Arthralgia [Recovered/Resolved]
  - Pain [Recovered/Resolved]
  - Joint contracture [Not Recovered/Not Resolved]
